FAERS Safety Report 5579826-7 (Version None)
Quarter: 2008Q1

REPORT INFORMATION
  Report Type: 
  Country: None (occurrence: None)
  Receive Date: 20080102
  Receipt Date: 20071225
  Transmission Date: 20080703
  Serious: Yes (Hospitalization, Other)
  Sender: FDA-Public Use
  Company Number: JP-PFIZER INC-2007107610

PATIENT
  Age: 32 Year
  Sex: Male

DRUGS (2)
  1. HALCION [Suspect]
     Route: 048
  2. OMEPRAZOLE [Concomitant]

REACTIONS (2)
  - HEPATIC FUNCTION ABNORMAL [None]
  - OVERDOSE [None]
